FAERS Safety Report 12948202 (Version 1)
Quarter: 2016Q4

REPORT INFORMATION
  Report Type: Spontaneous
  Country: CA (occurrence: CA)
  Receive Date: 20161116
  Receipt Date: 20161116
  Transmission Date: 20170207
  Serious: Yes (Other)
  Sender: FDA-Public Use
  Company Number: CA-009507513-1611CAN004094

PATIENT
  Age: 47 Year
  Sex: Female
  Weight: 68 kg

DRUGS (2)
  1. INVANZ [Concomitant]
     Active Substance: ERTAPENEM SODIUM
  2. CUBICIN [Suspect]
     Active Substance: DAPTOMYCIN
     Indication: INTERVERTEBRAL DISCITIS
     Dosage: 500.0 MG, 1 EVERY DAY
     Route: 042

REACTIONS (4)
  - Blood creatine phosphokinase increased [Unknown]
  - Pain in extremity [Unknown]
  - Myopathy [Unknown]
  - Pain [Unknown]
